FAERS Safety Report 5006172-2 (Version None)
Quarter: 2006Q1

REPORT INFORMATION
  Report Type: 
  Country: None (occurrence: None)
  Receive Date: 20060327
  Receipt Date: 20060214
  Transmission Date: 20060701
  Serious: No
  Sender: FDA-Public Use
  Company Number: 222213

PATIENT
  Age: 38 Year
  Sex: Female

DRUGS (3)
  1. AVASTIN [Suspect]
     Indication: BREAST CANCER METASTATIC
     Dosage: Q2W
     Dates: start: 20060119
  2. CYTOXAN [Concomitant]
  3. METHOTREXATE [Concomitant]

REACTIONS (1)
  - ABDOMINAL PAIN [None]
